FAERS Safety Report 6398217-2 (Version None)
Quarter: 2009Q4

REPORT INFORMATION
  Report Type: 
  Country: None (occurrence: None)
  Receive Date: 20091013
  Receipt Date: 20090930
  Transmission Date: 20100525
  Serious: Yes (Other)
  Sender: FDA-Public Use
  Company Number: PHHY2009JP42250

PATIENT
  Sex: Male

DRUGS (2)
  1. NEORAL [Suspect]
     Indication: INTERSTITIAL LUNG DISEASE
     Dosage: 2 CAPSULES DAILY
     Route: 048
  2. PREDNISOLONE [Suspect]
     Indication: MICROSCOPIC POLYANGIITIS
     Route: 048

REACTIONS (4)
  - ABASIA [None]
  - OSTEOPOROSIS [None]
  - PAIN IN EXTREMITY [None]
  - STRESS FRACTURE [None]
